FAERS Safety Report 9041488 (Version 1)
Quarter: 2013Q1

REPORT INFORMATION
  Report Type: Report from Study
  Country: US (occurrence: US)
  Receive Date: 20130129
  Receipt Date: 20130129
  Transmission Date: 20140127
  Serious: No
  Sender: FDA-Public Use
  Company Number: US-ABBOTT-12P-163-0903324-00

PATIENT
  Age: 35 Year
  Sex: Female

DRUGS (13)
  1. HUMIRA 40 MG/0.8 ML PEN [Suspect]
     Indication: CROHN^S DISEASE
     Dates: start: 20120124, end: 20120124
  2. HUMIRA 40 MG/0.8 ML PEN [Suspect]
     Dosage: LOADING DOSE
     Dates: start: 20120207
  3. EFFEXOR [Concomitant]
     Indication: DEPRESSION
     Dosage: 75 MG X 3 TABLETS DAILY = 225 MG
  4. WELLBUTRIN [Concomitant]
     Indication: DEPRESSION
     Dosage: DAILY
  5. LOVOXIL [Concomitant]
     Indication: HYPOTHYROIDISM
     Dosage: .75 MG DAILY
  6. ELMIRON [Concomitant]
     Indication: CYSTITIS INTERSTITIAL
     Dosage: 2 TABS IN THE AM AND 2 TABS IN THE PM
  7. DEXALON [Concomitant]
     Indication: GASTROOESOPHAGEAL REFLUX DISEASE
     Dosage: 60 MG DAILY
  8. ALLEGRA [Concomitant]
     Indication: HYPERSENSITIVITY
     Dosage: 180 MG DAILY
  9. SINGULAR [Concomitant]
     Indication: HYPERSENSITIVITY
     Dosage: DAILY
  10. CLONAZEPAM [Concomitant]
     Indication: ANXIETY
     Dosage: .5 MG AT BEDTIME
  11. VIT D [Concomitant]
     Indication: VITAMIN D DEFICIENCY
     Dosage: WEEKLY
  12. VIT D [Concomitant]
     Indication: VITAMIN SUPPLEMENTATION
  13. VIT. B [Concomitant]
     Indication: VITAMIN SUPPLEMENTATION
     Dosage: DAILY

REACTIONS (3)
  - Injection site erythema [Not Recovered/Not Resolved]
  - Injection site pruritus [Not Recovered/Not Resolved]
  - Injection site bruising [Not Recovered/Not Resolved]
